FAERS Safety Report 5360413-0 (Version None)
Quarter: 2007Q2

REPORT INFORMATION
  Report Type: 
  Country: None (occurrence: None)
  Receive Date: 20070612
  Receipt Date: 20070529
  Transmission Date: 20071010
  Serious: Yes (Death)
  Sender: FDA-Public Use
  Company Number: S07-USA-02312-01

PATIENT
  Age: 45 Year
  Sex: Male

DRUGS (20)
  1. CELEXA [Suspect]
     Indication: DEPRESSION
     Dosage: 20 MG QD PO
     Route: 048
     Dates: start: 20010101, end: 20060903
  2. ZYPREXA [Suspect]
     Dosage: 5 MG QHS
     Dates: end: 20060903
  3. PERCOCET [Suspect]
     Indication: PAIN
     Dates: start: 20060823, end: 20060903
  4. TYLENOL W/ CODEINE NO. 3 [Suspect]
     Indication: PAIN
     Dates: start: 20060824, end: 20060903
  5. GABAPENTIN [Concomitant]
  6. MIACALCIN (CALCIITONIN, SALMON) [Concomitant]
  7. CALCIUM WITH VITAMIN D [Concomitant]
  8. NAPROSYN [Concomitant]
  9. BACTRIM DS (COTRIMOXAZOLE) [Concomitant]
  10. DITROPAN XL [Concomitant]
  11. PRILOSEC [Concomitant]
  12. FLUCONAZOLE [Concomitant]
  13. ACYCLOVIR [Concomitant]
  14. ACETAMINOPHEN [Concomitant]
  15. INTERFERON ALPHA [Concomitant]
  16. ZOLEDRONIC ACID [Concomitant]
  17. ERYTHROPOIETIN ALFA [Concomitant]
  18. COLACE (DOCUSATE SODIUM) [Concomitant]
  19. FOLIC ACID [Concomitant]
  20. MULTI-VITAMIN [Concomitant]

REACTIONS (46)
  - AMYLOIDOSIS [None]
  - ANAEMIA [None]
  - ARTERIOSCLEROSIS [None]
  - ARTHRALGIA [None]
  - ASCITES [None]
  - BACK PAIN [None]
  - BODY TEMPERATURE INCREASED [None]
  - BONE DISORDER [None]
  - CARDIAC AMYLOIDOSIS [None]
  - CARDIAC ARREST [None]
  - CONVULSION [None]
  - DEPRESSION [None]
  - DRUG INTERACTION [None]
  - DRUG TOXICITY [None]
  - FALL [None]
  - FEELING ABNORMAL [None]
  - GASTROINTESTINAL DISORDER [None]
  - HEPATIC FUNCTION ABNORMAL [None]
  - IATROGENIC INJURY [None]
  - INTESTINAL HAEMORRHAGE [None]
  - LIVER DISORDER [None]
  - LUMBAR VERTEBRAL FRACTURE [None]
  - LUNG NEOPLASM [None]
  - METASTATIC NEOPLASM [None]
  - MULTIPLE MYELOMA [None]
  - MYOCARDIAL INFARCTION [None]
  - NEPHROSCLEROSIS [None]
  - OSTEOPOROSIS [None]
  - PAIN [None]
  - PERICARDIAL EFFUSION [None]
  - PLEURAL EFFUSION [None]
  - PLEURAL FIBROSIS [None]
  - PROCEDURAL COMPLICATION [None]
  - PROTEIN URINE PRESENT [None]
  - PULMONARY AMYLOIDOSIS [None]
  - PULMONARY FIBROSIS [None]
  - RENAL IMPAIRMENT [None]
  - RESPIRATORY DISTRESS [None]
  - RIB FRACTURE [None]
  - SPINAL COMPRESSION FRACTURE [None]
  - SPINAL DISORDER [None]
  - SPLEEN DISORDER [None]
  - STEM CELL TRANSPLANT [None]
  - STERNAL FRACTURE [None]
  - VOMITING [None]
  - WEIGHT DECREASED [None]
